FAERS Safety Report 17357387 (Version 1)
Quarter: 2020Q1

REPORT INFORMATION
  Report Type: Spontaneous
  Country: US (occurrence: US)
  Receive Date: 20200131
  Receipt Date: 20200131
  Transmission Date: 20200409
  Serious: No
  Sender: FDA-Public Use
  Company Number: US-BAUSCH-BL-2020-000738

PATIENT
  Sex: Female

DRUGS (1)
  1. RETIN-A MICRO [Suspect]
     Active Substance: TRETINOIN
     Indication: ACNE
     Dosage: AIRLESS PUMP
     Route: 065

REACTIONS (2)
  - Drug ineffective [Unknown]
  - Product container issue [Unknown]
